FAERS Safety Report 9695441 (Version 2)
Quarter: 2013Q4

REPORT INFORMATION
  Report Type: Report from Study
  Country: FR (occurrence: FR)
  Receive Date: 20131119
  Receipt Date: 20131125
  Transmission Date: 20140711
  Serious: Yes (Death, Hospitalization)
  Sender: FDA-Public Use
  Company Number: PHHY2013FR131701

PATIENT
  Age: 55 Year
  Sex: Male

DRUGS (16)
  1. AFINITOR [Suspect]
     Indication: RENAL CANCER
     Dosage: 10 MG, QD (28 TABS)
     Route: 048
     Dates: start: 20131002
  2. MEDROL [Concomitant]
     Indication: ANTIINFLAMMATORY THERAPY
     Dosage: 3 DF, QD
     Route: 048
     Dates: start: 201307
  3. OXYNORM [Concomitant]
     Indication: PAIN
     Dosage: 10 MG, BID
     Route: 048
     Dates: start: 20130506
  4. OXYCONTIN [Concomitant]
     Indication: PAIN
     Dosage: 90 MG, BID
     Route: 048
     Dates: start: 20130410
  5. MACROGOL [Concomitant]
     Indication: CONSTIPATION
     Dosage: 5.9 G, QID
     Route: 048
     Dates: start: 20130410
  6. LOVENOX [Concomitant]
     Indication: COAGULOPATHY
     Dosage: 0.4 ML, QD
     Route: 058
     Dates: start: 20130410
  7. DIFFU-K [Concomitant]
     Indication: HYPOKALAEMIA
     Dosage: 600 MG, BID
     Route: 048
     Dates: start: 20130410
  8. FENOFIBRATE [Concomitant]
     Indication: HYPERTRIGLYCERIDAEMIA
     Dosage: 500 MG, QD
     Route: 048
     Dates: start: 20130410
  9. DOLIPRANE [Concomitant]
     Indication: PAIN
     Dosage: 1 G, QID
     Route: 048
     Dates: start: 20130327
  10. NEBIVOLOL [Concomitant]
     Indication: HYPERTENSION
     Dosage: 05 MG, QD
     Route: 048
     Dates: start: 20130327
  11. ALPRESS [Concomitant]
     Indication: HYPERTENSION
     Dosage: 5 MG, QD
     Route: 048
     Dates: start: 20121115
  12. LYRICA [Concomitant]
     Indication: PAIN
     Dosage: 75 MG, BID
     Route: 048
     Dates: start: 20130327
  13. GAVISCON                                /GFR/ [Concomitant]
     Indication: GASTROOESOPHAGEAL REFLUX DISEASE
     Dosage: 3 DF, QD
     Route: 048
     Dates: start: 20130327
  14. INEXIUM//ESOMEPRAZOLE SODIUM [Concomitant]
     Indication: GASTROOESOPHAGEAL REFLUX DISEASE
     Dosage: 40 MG, QD
     Route: 048
     Dates: start: 20130327
  15. BROMAZEPAM [Concomitant]
     Indication: ANXIETY
     Dosage: 6 MG, TID
     Route: 048
     Dates: start: 20130327
  16. PRIMPERAN                               /SCH/ [Concomitant]
     Indication: ANTIEMETIC SUPPORTIVE CARE
     Dosage: 10 MG, TID
     Route: 048
     Dates: start: 20130301

REACTIONS (9)
  - Nervous system disorder [Unknown]
  - Septic shock [Fatal]
  - Musculoskeletal chest pain [Unknown]
  - General physical health deterioration [Unknown]
  - Confusional state [Unknown]
  - Lung disorder [Unknown]
  - Hypoxia [Unknown]
  - Pyrexia [Unknown]
  - Spinal cord compression [Unknown]
